FAERS Safety Report 17162891 (Version 1)
Quarter: 2019Q4

REPORT INFORMATION
  Report Type: Spontaneous
  Country: US (occurrence: US)
  Receive Date: 20191216
  Receipt Date: 20191216
  Transmission Date: 20200122
  Serious: Yes (Death)
  Sender: FDA-Public Use
  Company Number: None

PATIENT
  Age: 5 Year
  Sex: Male

DRUGS (7)
  1. NO DRUG NAME [Concomitant]
     Dates: end: 20191214
  2. DEXAMETHASON TAB 1MG [Concomitant]
     Dates: start: 20191028, end: 20191214
  3. DEXAMETHASON TAB 1MG [Concomitant]
     Dates: start: 20191125, end: 20191214
  4. AZITHROMYCIN SUS 200/5ML [Concomitant]
     Dates: start: 20191212, end: 20191214
  5. FARYDAK [Suspect]
     Active Substance: PANOBINOSTAT
     Indication: BRAIN NEOPLASM MALIGNANT
     Dosage: ?          OTHER FREQUENCY:D 13581012 -21 DAY;?
     Route: 048
     Dates: start: 20190823, end: 20191214
  6. HYDROCO/APAP TAB 5-325MG [Concomitant]
     Active Substance: ACETAMINOPHEN\HYDROCODONE
     Dates: start: 20191206, end: 20191214
  7. CLINDAMYCIN CAP 300MG [Concomitant]
     Active Substance: CLINDAMYCIN
     Dates: start: 20191207, end: 20191214

REACTIONS (1)
  - Death [None]

NARRATIVE: CASE EVENT DATE: 20191214
